FAERS Safety Report 4945321-9 (Version None)
Quarter: 2006Q1

REPORT INFORMATION
  Report Type: 
  Country: None (occurrence: None)
  Receive Date: 20060315
  Receipt Date: 20060315
  Transmission Date: 20060701
  Serious: Yes (Hospitalization)
  Sender: FDA-Public Use
  Company Number: None

PATIENT
  Age: 68 Year
  Sex: Female

DRUGS (2)
  1. VYTORIN [Suspect]
     Indication: CORONARY ARTERIAL STENT INSERTION
     Dosage: 40/10 PO
     Route: 048
     Dates: start: 20040909, end: 20050119
  2. VYTORIN [Suspect]
     Indication: HYPERLIPIDAEMIA
     Dosage: 40/10 PO
     Route: 048
     Dates: start: 20040909, end: 20050119

REACTIONS (2)
  - HEPATIC FAILURE [None]
  - RHABDOMYOLYSIS [None]
